FAERS Safety Report 8298921-5 (Version None)
Quarter: 2012Q2

REPORT INFORMATION
  Report Type: 
  Country: None (occurrence: None)
  Receive Date: 20120419
  Receipt Date: 20120417
  Transmission Date: 20120825
  Serious: Yes (Other)
  Sender: FDA-Public Use
  Company Number: US-PFIZER INC-2012023531

PATIENT
  Sex: Female
  Weight: 80.726 kg

DRUGS (10)
  1. LISINOPRIL [Concomitant]
     Indication: HYPERTENSION
     Dosage: UNK
  2. TRIAMTERENE [Concomitant]
     Indication: HYPERTENSION
     Dosage: UNK
  3. HYDROCHLOROTHIAZIDE [Concomitant]
     Indication: HYPERTENSION
     Dosage: UNK
  4. TRAMADOL [Concomitant]
     Dosage: 50 MG, UNK
  5. LYRICA [Suspect]
     Indication: PAIN
  6. VICODIN [Concomitant]
     Dosage: UNK
  7. MELOXICAM [Concomitant]
     Indication: JOINT SWELLING
     Dosage: 15 MG, UNK
  8. LYRICA [Suspect]
     Indication: FIBROMYALGIA
  9. ATENOLOL [Concomitant]
     Indication: HYPERTENSION
     Dosage: UNK
  10. LYRICA [Suspect]
     Indication: ARTHRITIS
     Dosage: 50 MG, 3X/DAY
     Route: 048
     Dates: start: 20100101, end: 20111001

REACTIONS (1)
  - PAIN [None]
